FAERS Safety Report 5167503-6 (Version None)
Quarter: 2006Q4

REPORT INFORMATION
  Report Type: 
  Country: None (occurrence: None)
  Receive Date: 20061130
  Receipt Date: 20061115
  Transmission Date: 20070319
  Serious: Yes (Other)
  Sender: FDA-Public Use
  Company Number: CIP06002741

PATIENT
  Age: 53 Year
  Sex: Male

DRUGS (13)
  1. DANTRIUM [Suspect]
     Dosage: 25 MG DAILY, ORAL
     Route: 048
  2. LIPITOR [Suspect]
     Dosage: ORAL
     Route: 048
     Dates: start: 20061025, end: 20061110
  3. CLONAZEPAM [Concomitant]
  4. MARZULENE ES (LEVOGLUTAMIDE, AZULENE SODIUM SULFONATE) [Concomitant]
  5. TEGRETOL [Concomitant]
  6. ARTANE (TRIHEXPHENIDYL HYDROCHLORIDE) [Concomitant]
  7. TIZANIDINE HCL [Concomitant]
  8. ALPRAZOLAM [Concomitant]
  9. TICLOPIDINE HCL [Concomitant]
  10. AMITRIPTYLINE HCL [Concomitant]
  11. HALCION [Concomitant]
  12. HERBAL PREPARATION [Concomitant]
  13. ACECOL (TEMOCAPRIL HYDROCHLORIDE) [Concomitant]

REACTIONS (1)
  - RHABDOMYOLYSIS [None]
